FAERS Safety Report 4756331-9 (Version None)
Quarter: 2005Q3

REPORT INFORMATION
  Report Type: 
  Country: None (occurrence: None)
  Receive Date: 20050830
  Receipt Date: 20050531
  Transmission Date: 20060218
  Serious: No
  Sender: FDA-Public Use
  Company Number: US-GLAXOSMITHKLINE-A0560761A

PATIENT

DRUGS (1)
  1. WELLBUTRIN [Suspect]

REACTIONS (1)
  - AGITATION [None]
